FAERS Safety Report 12607406 (Version 1)
Quarter: 2016Q3

REPORT INFORMATION
  Report Type: Report from Study
  Country: IN (occurrence: IN)
  Receive Date: 20160729
  Receipt Date: 20160729
  Transmission Date: 20161109
  Serious: Yes (Other)
  Sender: FDA-Public Use
  Company Number: IN-MYLANLABS-2015M1009774

PATIENT

DRUGS (2)
  1. METHOTREXATE. [Suspect]
     Active Substance: METHOTREXATE
     Indication: PSORIASIS
     Dosage: 15 MG/WEEK
     Route: 065
  2. CICLOSPORIN [Suspect]
     Active Substance: CYCLOSPORINE
     Indication: PSORIASIS
     Dosage: 200 MG/DAY
     Route: 065

REACTIONS (5)
  - Hepatic enzyme increased [Recovered/Resolved]
  - Hypertension [Unknown]
  - Blood creatinine increased [Unknown]
  - Hyperlipidaemia [Unknown]
  - Hyperkalaemia [Unknown]
